FAERS Safety Report 10530896 (Version 3)
Quarter: 2015Q1

REPORT INFORMATION
  Report Type: Spontaneous
  Country: JP (occurrence: JP)
  Receive Date: 20141021
  Receipt Date: 20150129
  Transmission Date: 20150720
  Serious: Yes (Life-Threatening, Hospitalization, Other)
  Sender: FDA-Public Use
  Company Number: JP-GLAXOSMITHKLINE-JP2014JPN003111

PATIENT
  Age: 68 Year
  Sex: Male
  Weight: 64 kg

DRUGS (9)
  1. NORVASC [Concomitant]
     Active Substance: AMLODIPINE BESYLATE
     Dosage: 5 MG, QD
  2. WARFARIN [Concomitant]
     Active Substance: WARFARIN
     Dosage: 2 MG, QD
  3. ALOSITOL [Concomitant]
     Active Substance: ALLOPURINOL
     Dosage: 100 MG, TID
  4. VOTRIENT [Suspect]
     Active Substance: PAZOPANIB HYDROCHLORIDE
     Dosage: 600 MG, QD
     Route: 048
     Dates: start: 20140714, end: 20140908
  5. INLYTA [Concomitant]
     Active Substance: AXITINIB
     Dosage: 7 MG, BID
     Dates: start: 20131109, end: 20140210
  6. INLYTA [Concomitant]
     Active Substance: AXITINIB
     Dosage: 5 MG, BID
     Dates: start: 20140430, end: 20140616
  7. GASTER [Concomitant]
     Active Substance: FAMOTIDINE
     Dosage: 10 MG, BID
  8. VOTRIENT [Suspect]
     Active Substance: PAZOPANIB HYDROCHLORIDE
     Indication: RENAL CELL CARCINOMA
     Dosage: 800 MG, QD
     Route: 048
     Dates: start: 20140616, end: 20140713
  9. THYRADIN [Concomitant]
     Active Substance: LEVOTHYROXINE
     Dosage: 50 MG, QD

REACTIONS (4)
  - Treatment noncompliance [Unknown]
  - Dyspnoea [Unknown]
  - Interstitial lung disease [Recovering/Resolving]
  - Computerised tomogram thorax abnormal [Unknown]

NARRATIVE: CASE EVENT DATE: 20140904
